FAERS Safety Report 13679570 (Version 1)
Quarter: 2017Q2

REPORT INFORMATION
  Report Type: Spontaneous
  Country: RU (occurrence: RU)
  Receive Date: 20170622
  Receipt Date: 20170622
  Transmission Date: 20170830
  Serious: Yes (Other)
  Sender: FDA-Public Use
  Company Number: RU-ELI_LILLY_AND_COMPANY-RU201706007864

PATIENT
  Age: 61 Year
  Sex: Male

DRUGS (6)
  1. OXALIPLATIN. [Concomitant]
     Active Substance: OXALIPLATIN
     Indication: COLON CANCER
     Dosage: 85 MG/M2, UNKNOWN
     Route: 041
  2. LEUCOVORIN LENS [Concomitant]
     Indication: COLON CANCER
     Dosage: 400 MG/M2, UNKNOWN
     Route: 041
  3. 5-FLUOROURACIL                     /00098801/ [Concomitant]
     Active Substance: FLUOROURACIL
     Dosage: 2400 MG/M2, UNKNOWN
     Route: 041
  4. ERBITUX [Suspect]
     Active Substance: CETUXIMAB
     Dosage: 250 MG/M2, WEEKLY (1/W)
     Route: 065
  5. 5-FLUOROURACIL                     /00098801/ [Concomitant]
     Active Substance: FLUOROURACIL
     Indication: COLON CANCER
     Dosage: 400 MG/M2, UNKNOWN
     Route: 041
  6. ERBITUX [Suspect]
     Active Substance: CETUXIMAB
     Indication: COLON CANCER
     Dosage: 400 MG/M2, UNKNOWN
     Route: 065
     Dates: start: 20161130

REACTIONS (2)
  - Skin toxicity [Unknown]
  - Metastases to liver [Unknown]
